FAERS Safety Report 9043485 (Version 1)
Quarter: 2013Q1

REPORT INFORMATION
  Report Type: Report from Study
  Country: US (occurrence: US)
  Receive Date: 20130129
  Receipt Date: 20130129
  Transmission Date: 20140127
  Serious: No
  Sender: FDA-Public Use
  Company Number: US-ABBOTT-12P-163-0914515-00

PATIENT
  Sex: Female
  Weight: 118.04 kg

DRUGS (10)
  1. HUMIRA 40 MG/0.8 ML PEN [Suspect]
     Indication: RHEUMATOID ARTHRITIS
     Dates: start: 201107, end: 201201
  2. METHOTREXATE [Concomitant]
     Indication: RHEUMATOID ARTHRITIS
     Dates: end: 201112
  3. METHOTREXATE [Concomitant]
     Dosage: INCREASED DOSE FROM PREVIOUS
     Dates: start: 201112
  4. PREDNISONE [Concomitant]
     Indication: RHEUMATOID ARTHRITIS
  5. ABILIFY [Concomitant]
     Indication: BIPOLAR DISORDER
  6. WELLBUTRIN [Concomitant]
     Indication: BIPOLAR DISORDER
  7. CELEXA [Concomitant]
     Indication: BIPOLAR DISORDER
  8. ATIVAN [Concomitant]
     Indication: BIPOLAR DISORDER
  9. ESTRADIOL [Concomitant]
     Indication: HORMONE REPLACEMENT THERAPY
  10. RISPERIDONE [Concomitant]
     Indication: BIPOLAR DISORDER

REACTIONS (2)
  - Pain [Not Recovered/Not Resolved]
  - Musculoskeletal stiffness [Not Recovered/Not Resolved]
